FAERS Safety Report 7659426-5 (Version None)
Quarter: 2011Q3

REPORT INFORMATION
  Report Type: 
  Country: None (occurrence: None)
  Receive Date: 20110804
  Receipt Date: 20110804
  Transmission Date: 20111222
  Serious: No
  Sender: FDA-Public Use
  Company Number: None

PATIENT
  Age: 84 Year
  Sex: Female
  Weight: 47.6277 kg

DRUGS (1)
  1. PROLIA [Suspect]
     Indication: OSTEOPOROSIS
     Dosage: PROLIA 60MG/ML INJECTION ONCE SUB-Q
     Route: 058
     Dates: start: 20110112

REACTIONS (9)
  - LIP DRY [None]
  - DIZZINESS [None]
  - DYSPNOEA [None]
  - FATIGUE [None]
  - DYSPHONIA [None]
  - DRY SKIN [None]
  - THROAT TIGHTNESS [None]
  - DRY THROAT [None]
  - INCORRECT DRUG ADMINISTRATION DURATION [None]
